FAERS Safety Report 22169147 (Version 1)
Quarter: 2023Q2

REPORT INFORMATION
  Report Type: Spontaneous
  Country: DE (occurrence: DE)
  Receive Date: 20230404
  Receipt Date: 20230404
  Transmission Date: 20230722
  Serious: Yes (Other)
  Sender: FDA-Public Use
  Company Number: DE-ELI_LILLY_AND_COMPANY-DE202303009461

PATIENT
  Age: 61 Year
  Sex: Female

DRUGS (5)
  1. DOCETAXEL [Suspect]
     Active Substance: DOCETAXEL
     Indication: Non-small cell lung cancer metastatic
     Dosage: UNK, UNKNOWN
     Route: 065
     Dates: start: 202201
  2. PEMETREXED [Suspect]
     Active Substance: PEMETREXED
     Indication: Non-small cell lung cancer metastatic
     Dosage: UNK, UNKNOWN
     Route: 065
     Dates: start: 202005, end: 202010
  3. PEMBROLIZUMAB [Suspect]
     Active Substance: PEMBROLIZUMAB
     Indication: Non-small cell lung cancer metastatic
     Dosage: UNK, UNKNOWN
     Route: 065
     Dates: start: 202005, end: 202010
  4. RAMUCIRUMAB [Suspect]
     Active Substance: RAMUCIRUMAB
     Indication: Non-small cell lung cancer metastatic
     Dosage: UNK, UNKNOWN
     Route: 065
     Dates: start: 202201
  5. CARBOPLATIN [Suspect]
     Active Substance: CARBOPLATIN
     Indication: Non-small cell lung cancer metastatic
     Dosage: UNK, UNKNOWN
     Route: 065
     Dates: start: 202005, end: 202010

REACTIONS (7)
  - Malignant neoplasm progression [Unknown]
  - Leukopenia [Unknown]
  - Lacrimation increased [Unknown]
  - Epistaxis [Unknown]
  - Mucosal inflammation [Unknown]
  - Palmar-plantar erythrodysaesthesia syndrome [Unknown]
  - Nausea [Unknown]

NARRATIVE: CASE EVENT DATE: 20200101
